FAERS Safety Report 6592986-4 (Version None)
Quarter: 2010Q1

REPORT INFORMATION
  Report Type: 
  Country: None (occurrence: None)
  Receive Date: 20100212
  Receipt Date: 20100129
  Transmission Date: 20100710
  Serious: Yes (Death, Hospitalization)
  Sender: FDA-Public Use
  Company Number: B0630865A

PATIENT
  Age: 12 Year
  Sex: Male

DRUGS (2)
  1. PROPRANOLOL HYDROCHLORIDE [Suspect]
     Dosage: INTRAVENOUS INFUSION
  2. ANTIDEPRESSANT [Concomitant]

REACTIONS (11)
  - BLOOD TRIGLYCERIDES INCREASED [None]
  - BRADYARRHYTHMIA [None]
  - CARDIAC FAILURE [None]
  - CARDIOVASCULAR DISORDER [None]
  - ELECTROCARDIOGRAM ST SEGMENT ELEVATION [None]
  - LACTIC ACIDOSIS [None]
  - PROPOFOL INFUSION SYNDROME [None]
  - RENAL TUBULAR DISORDER [None]
  - RHABDOMYOLYSIS [None]
  - TROPONIN INCREASED [None]
  - VENTRICULAR ARRHYTHMIA [None]
